FAERS Safety Report 5518368-1 (Version None)
Quarter: 2007Q4

REPORT INFORMATION
  Report Type: 
  Country: None (occurrence: None)
  Receive Date: 20071113
  Receipt Date: 20071031
  Transmission Date: 20080405
  Serious: Yes (Disabling)
  Sender: FDA-Public Use
  Company Number: GXKR2007GB09419

PATIENT
  Age: 79 Year
  Sex: Female
  Weight: 91 kg

DRUGS (10)
  1. GABAPENTIN [Suspect]
     Indication: NEURALGIA
     Dosage: 300 MG, BID, ORAL
     Route: 048
     Dates: start: 20051001, end: 20051201
  2. ATENOLOL [Concomitant]
  3. CODEINE PHOSPHATE AND ACETAMINOPHEN [Concomitant]
  4. DIAZEPAM [Concomitant]
  5. ENALAPRIL MALEATE [Concomitant]
  6. OXERUTINS                (TROXERUTIN) [Concomitant]
  7. PROCTOSEDYL [Concomitant]
  8. TEMAZEPAM [Concomitant]
  9. LEVOTHYROXINE SODIUM [Concomitant]
  10. WARFARIN SODIUM [Concomitant]

REACTIONS (4)
  - GINGIVAL PAIN [None]
  - LIP PAIN [None]
  - MOUTH ULCERATION [None]
  - RASH GENERALISED [None]
